FAERS Safety Report 18704622 (Version 1)
Quarter: 2021Q1

REPORT INFORMATION
  Report Type: Spontaneous
  Country: US (occurrence: US)
  Receive Date: 20210105
  Receipt Date: 20210105
  Transmission Date: 20210419
  Serious: Yes (Death)
  Sender: FDA-Public Use
  Company Number: US-JNJFOC-20210100378

PATIENT
  Sex: Male
  Weight: 72.64 kg

DRUGS (1)
  1. IMODIUM [Suspect]
     Active Substance: LOPERAMIDE HYDROCHLORIDE
     Indication: PRODUCT USED FOR UNKNOWN INDICATION
     Dosage: ANON DAILY
     Route: 048

REACTIONS (2)
  - Gastrointestinal obstruction [Fatal]
  - Incorrect product administration duration [Unknown]
